FAERS Safety Report 7025648-X (Version None)
Quarter: 2010Q4

REPORT INFORMATION
  Report Type: 
  Country: None (occurrence: None)
  Receive Date: 20101004
  Receipt Date: 20100928
  Transmission Date: 20110411
  Serious: Yes (Hospitalization, Other)
  Sender: FDA-Public Use
  Company Number: BR-BAYER-201018764LA

PATIENT
  Age: 35 Year
  Sex: Female
  Weight: 62 kg

DRUGS (1)
  1. YAZ [Suspect]
     Indication: CONTRACEPTION
     Route: 048
     Dates: start: 20091201

REACTIONS (4)
  - HYPOMENORRHOEA [None]
  - MENSTRUAL DISORDER [None]
  - MENSTRUATION DELAYED [None]
  - THYROID NEOPLASM [None]
